FAERS Safety Report 10296402 (Version 1)
Quarter: 2014Q3

REPORT INFORMATION
  Report Type: Spontaneous
  Country: US (occurrence: US)
  Receive Date: 20140710
  Receipt Date: 20140710
  Transmission Date: 20150326
  Serious: No
  Sender: FDA-Public Use
  Company Number: US-PURDUE-USA-2014-0114908

PATIENT
  Sex: Male

DRUGS (6)
  1. TIZANIDINE [Concomitant]
     Active Substance: TIZANIDINE
     Indication: RELAXATION THERAPY
     Route: 048
  2. TRAMADOL (SIMILAR TO NDA 21-745) [Concomitant]
     Active Substance: TRAMADOL
     Indication: BREAKTHROUGH PAIN
     Route: 048
  3. BUSPIRONE                          /00803202/ [Concomitant]
     Indication: ANXIETY
     Route: 048
  4. BUTRANS [Suspect]
     Active Substance: BUPRENORPHINE
     Indication: PAIN
     Dosage: 15 MCG/HR, WEEKLY
     Route: 062
  5. BUTRANS [Suspect]
     Active Substance: BUPRENORPHINE
     Dosage: 10 MCG/HR, WEEKLY
     Route: 062
  6. BUTRANS [Suspect]
     Active Substance: BUPRENORPHINE
     Dosage: 5 MCG/HR, WEEKLY
     Route: 062

REACTIONS (7)
  - Pain [Unknown]
  - Inadequate analgesia [Unknown]
  - Constipation [Recovered/Resolved]
  - Anxiety [Not Recovered/Not Resolved]
  - Drug withdrawal syndrome [Unknown]
  - Formication [Unknown]
  - Drug screen negative [Unknown]
